FAERS Safety Report 8219300-2 (Version None)
Quarter: 2012Q1

REPORT INFORMATION
  Report Type: 
  Country: None (occurrence: None)
  Receive Date: 20120319
  Receipt Date: 20120312
  Transmission Date: 20120608
  Serious: Yes (Hospitalization)
  Sender: FDA-Public Use
  Company Number: US-BAYER-201023257NA

PATIENT
  Age: 25 Year
  Sex: Female
  Weight: 68.027 kg

DRUGS (7)
  1. YASMIN [Suspect]
     Indication: CONTRACEPTION
     Dosage: UNK UNK, QD
     Route: 048
     Dates: start: 20040423, end: 20050825
  2. FLEXERIL [Concomitant]
     Indication: ANALGESIC THERAPY
     Dosage: UNK UNK, UNK
     Dates: start: 20050701
  3. MUCINEX [Concomitant]
     Indication: PRODUCT USED FOR UNKNOWN INDICATION
     Dosage: UNK UNK, UNK
     Dates: start: 20050701, end: 20050801
  4. ZICAM [Concomitant]
  5. COMTREX [Concomitant]
  6. NAPROSYN [Concomitant]
     Indication: ANALGESIC THERAPY
     Dosage: UNK UNK, UNK
     Dates: start: 20050701, end: 20050801
  7. OVER THE COUNTER DECONGESTANT [Concomitant]
     Indication: RESPIRATORY TRACT INFECTION
     Dosage: UNK
     Dates: start: 20050701

REACTIONS (1)
  - PULMONARY EMBOLISM [None]
